FAERS Safety Report 8051065-X (Version None)
Quarter: 2012Q1

REPORT INFORMATION
  Report Type: 
  Country: None (occurrence: None)
  Receive Date: 20120117
  Receipt Date: 20120111
  Transmission Date: 20120608
  Serious: Yes (Death, Other)
  Sender: FDA-Public Use
  Company Number: PHHY2012IT003055

PATIENT

DRUGS (1)
  1. RAD001 [Suspect]
     Indication: MYELOFIBROSIS
     Dosage: 5 MG, DAILY

REACTIONS (2)
  - PNEUMONITIS [None]
  - MULTI-ORGAN FAILURE [None]
